FAERS Safety Report 8306477-3 (Version None)
Quarter: 2012Q2

REPORT INFORMATION
  Report Type: 
  Country: None (occurrence: None)
  Receive Date: 20120424
  Receipt Date: 20120415
  Transmission Date: 20120825
  Serious: Yes (Hospitalization)
  Sender: FDA-Public Use
  Company Number: US-BIOGENIDEC-2010BI028175

PATIENT
  Age: 40 Year
  Sex: Male

DRUGS (5)
  1. 4-AP [Concomitant]
  2. CANABIS [Concomitant]
     Indication: MUSCLE SPASTICITY
  3. KLONOPIN [Concomitant]
     Indication: VERTIGO
  4. TYSABRI [Suspect]
     Indication: MULTIPLE SCLEROSIS
     Route: 042
     Dates: start: 20070227, end: 20100722
  5. CANABIS [Concomitant]
     Indication: VERTIGO

REACTIONS (3)
  - PROGRESSIVE MULTIFOCAL LEUKOENCEPHALOPATHY [None]
  - DEPRESSION [None]
  - MULTIPLE SCLEROSIS [None]
